FAERS Safety Report 4360959-8 (Version None)
Quarter: 2004Q2

REPORT INFORMATION
  Report Type: 
  Country: None (occurrence: None)
  Receive Date: 20040517
  Receipt Date: 20040512
  Transmission Date: 20050107
  Serious: No
  Sender: FDA-Public Use
  Company Number: 2003-105293-NL

PATIENT
  Age: 49 Year
  Sex: Female

DRUGS (7)
  1. MIRTAZAPINE [Suspect]
     Indication: DEPRESSION
     Dosage: 15 MG QD
     Route: 048
     Dates: start: 20030305, end: 20030423
  2. LITHIUM CARBONATE [Concomitant]
  3. CLONAZEPAM [Concomitant]
  4. RISPERIDONE [Concomitant]
  5. CARBAMAZEPINE [Concomitant]
  6. TRAZODONE HCL [Concomitant]
  7. TRIMEBUTINE [Concomitant]

REACTIONS (6)
  - ASPARTATE AMINOTRANSFERASE INCREASED [None]
  - DROOLING [None]
  - FACE OEDEMA [None]
  - INSOMNIA [None]
  - MUSCULOSKELETAL STIFFNESS [None]
  - TREMOR [None]
